FAERS Safety Report 15989540 (Version 3)
Quarter: 2019Q1

REPORT INFORMATION
  Report Type: Spontaneous
  Country: US (occurrence: US)
  Receive Date: 20190221
  Receipt Date: 20190314
  Transmission Date: 20190418
  Serious: Yes (Other)
  Sender: FDA-Public Use
  Company Number: US-PFIZER INC-2019068592

PATIENT
  Age: 64 Year
  Sex: Male
  Weight: 100 kg

DRUGS (5)
  1. LYRICA [Suspect]
     Active Substance: PREGABALIN
     Dosage: 50 MG, UNK
     Dates: start: 20190116, end: 20190215
  2. MECLIZINE [Concomitant]
     Active Substance: MECLIZINE HYDROCHLORIDE
     Indication: VERTIGO
     Dosage: 25 MG, 2X/DAY
     Route: 048
     Dates: start: 1992
  3. LYRICA [Suspect]
     Active Substance: PREGABALIN
     Indication: SCIATICA
     Dosage: 25 MG, 1X/DAY (TAKES 1 TABLET)
     Route: 048
  4. IRBESARTAN. [Concomitant]
     Active Substance: IRBESARTAN
     Indication: BLOOD PRESSURE ABNORMAL
     Dosage: 300 MG, DAILY (TAKES 1 TABLET PER DAY)
     Route: 048
  5. LYRICA [Suspect]
     Active Substance: PREGABALIN
     Indication: NEURALGIA
     Dosage: UNK, 3X/DAY
     Dates: start: 201812

REACTIONS (22)
  - Fatigue [Unknown]
  - Weight increased [Recovered/Resolved]
  - Dysphonia [Not Recovered/Not Resolved]
  - Drug ineffective [Unknown]
  - Cough [Unknown]
  - Lung disorder [Unknown]
  - Dry mouth [Recovering/Resolving]
  - Chest pain [Recovered/Resolved]
  - Lip swelling [Recovered/Resolved]
  - Product use issue [Unknown]
  - Aphonia [Recovering/Resolving]
  - Hunger [Unknown]
  - Dry throat [Not Recovered/Not Resolved]
  - Joint swelling [Recovered/Resolved]
  - Depression [Recovered/Resolved]
  - Anger [Recovered/Resolved]
  - Neoplasm malignant [Unknown]
  - Abdominal pain upper [Unknown]
  - Gait inability [Recovered/Resolved]
  - Dyspnoea [Recovering/Resolving]
  - Disorientation [Recovered/Resolved]
  - Insomnia [Recovering/Resolving]

NARRATIVE: CASE EVENT DATE: 201812
